FAERS Safety Report 11598868 (Version 1)
Quarter: 2015Q4

REPORT INFORMATION
  Report Type: Spontaneous
  Country: FR (occurrence: FR)
  Receive Date: 20151006
  Receipt Date: 20151006
  Transmission Date: 20160304
  Serious: Yes (Life-Threatening, Hospitalization, Other)
  Sender: FDA-Public Use
  Company Number: FR-BAXTER-2015BAX053618

PATIENT
  Age: 85 Year
  Sex: Female

DRUGS (14)
  1. ENDOXAN 1000 MG, POUDRE POUR SOLUTION INJECTABLE [Suspect]
     Active Substance: CYCLOPHOSPHAMIDE
     Indication: B-CELL LYMPHOMA RECURRENT
     Dosage: FIRST COURSE, SINGLE DOSE
     Route: 042
     Dates: start: 20150903, end: 20150903
  2. CELLTOP 100 MG/5 ML, SOLUTION INJECTABLE POUR PERFUSION [Suspect]
     Active Substance: ETOPOSIDE
     Indication: B-CELL LYMPHOMA RECURRENT
     Dosage: FIRST COURSE, SINGLE DOSE
     Route: 042
     Dates: start: 20150903, end: 20150903
  3. SOLUPRED [Suspect]
     Active Substance: PREDNISOLONE
     Indication: B-CELL LYMPHOMA RECURRENT
     Dosage: FIRST COURSE
     Route: 048
     Dates: start: 20150903, end: 20150906
  4. SOLUPRED [Suspect]
     Active Substance: PREDNISOLONE
     Indication: B-CELL LYMPHOMA STAGE IV
  5. ESOMEPRAZOLE [Concomitant]
     Active Substance: ESOMEPRAZOLE
     Indication: DRUG THERAPY
     Route: 065
  6. ALLOPURINOL. [Concomitant]
     Active Substance: ALLOPURINOL
     Indication: DRUG THERAPY
     Route: 065
  7. LASILIX [Concomitant]
     Active Substance: FUROSEMIDE
     Indication: DRUG THERAPY
     Route: 065
  8. ENDOXAN 1000 MG, POUDRE POUR SOLUTION INJECTABLE [Suspect]
     Active Substance: CYCLOPHOSPHAMIDE
     Indication: B-CELL LYMPHOMA STAGE IV
  9. PREVISCAN [Suspect]
     Active Substance: FLUINDIONE
     Indication: THROMBOSIS PROPHYLAXIS
     Route: 048
  10. GRANOCYTE [Suspect]
     Active Substance: LENOGRASTIM
     Indication: COLONY STIMULATING FACTOR PROPHYLAXIS
     Dosage: 34 MIU (MILLI INTERNATIONAL UNITS)
     Route: 065
     Dates: start: 20150908, end: 20150911
  11. CELLTOP 100 MG/5 ML, SOLUTION INJECTABLE POUR PERFUSION [Suspect]
     Active Substance: ETOPOSIDE
     Indication: B-CELL LYMPHOMA STAGE IV
  12. SERESTA [Concomitant]
     Active Substance: OXAZEPAM
     Indication: DRUG THERAPY
     Route: 065
  13. SERETIDE [Concomitant]
     Active Substance: FLUTICASONE FUROATE\SALMETEROL XINAFOATE
     Indication: DRUG THERAPY
     Route: 065
  14. PARACETAMOL [Concomitant]
     Active Substance: ACETAMINOPHEN
     Indication: DRUG THERAPY
     Route: 065

REACTIONS (5)
  - Shock haemorrhagic [Unknown]
  - Tumour haemorrhage [Unknown]
  - Systemic inflammatory response syndrome [Unknown]
  - Peritoneal haemorrhage [Unknown]
  - Renal impairment [Unknown]

NARRATIVE: CASE EVENT DATE: 20150915
